FAERS Safety Report 14241944 (Version 3)
Quarter: 2018Q1

REPORT INFORMATION
  Report Type: Spontaneous
  Country: CN (occurrence: CN)
  Receive Date: 20171201
  Receipt Date: 20180302
  Transmission Date: 20180508
  Serious: Yes (Other)
  Sender: FDA-Public Use
  Company Number: CN-ORPHAN EUROPE-2036445

PATIENT
  Age: 13 Year
  Sex: Male

DRUGS (7)
  1. LEUCOVORINE [Concomitant]
     Active Substance: LEUCOVORIN
  2. VITAMIN B6 [Concomitant]
     Active Substance: PYRIDOXINE HYDROCHLORIDE
  3. CYSTADANE [Suspect]
     Active Substance: BETAINE
     Indication: METHYLMALONIC ACIDURIA
     Route: 048
  4. LEVOCARNITINE. [Concomitant]
     Active Substance: LEVOCARNITINE
  5. VITAMIN B12 [Concomitant]
     Active Substance: CYANOCOBALAMIN
  6. VITAMIN B12 [Concomitant]
     Active Substance: CYANOCOBALAMIN
  7. FOLINIC ACID [Concomitant]
     Active Substance: LEUCOVORIN

REACTIONS (1)
  - Drug ineffective [Unknown]
